FAERS Safety Report 7987341-6 (Version None)
Quarter: 2011Q4

REPORT INFORMATION
  Report Type: 
  Country: None (occurrence: None)
  Receive Date: 20111216
  Receipt Date: 20111018
  Transmission Date: 20120403
  Serious: No
  Sender: FDA-Public Use
  Company Number: US-BRISTOL-MYERS SQUIBB COMPANY-16177321

PATIENT
  Age: 38 Year
  Sex: Female

DRUGS (1)
  1. ABILIFY [Suspect]
     Indication: BIPOLAR DISORDER
     Dosage: INTIALLY START WITH 10MG,SEP2011:DOSE WAS INCREASED 15MG OCT2011 :DOSE WAS DECREASED TO 7.5MG
     Dates: start: 20110701

REACTIONS (2)
  - TREMOR [None]
  - DIZZINESS [None]
